FAERS Safety Report 4672620-0 (Version None)
Quarter: 2005Q2

REPORT INFORMATION
  Report Type: 
  Country: None (occurrence: None)
  Receive Date: 20050524
  Receipt Date: 20050420
  Transmission Date: 20051028
  Serious: Yes (Disabling, Other)
  Sender: FDA-Public Use
  Company Number: ES-BRISTOL-MYERS SQUIBB COMPANY-12942595

PATIENT
  Age: 69 Year
  Sex: Female

DRUGS (4)
  1. TAXOL [Suspect]
     Indication: BREAST CANCER
     Dosage: PRIOR DOSE: 150 MG/M2 (BI-WEEKLY) FROM 10-DEC-2004 TO 04-JAN-2005
     Route: 042
     Dates: start: 20050118, end: 20050413
  2. GEMCITABINE [Concomitant]
     Indication: BREAST CANCER
     Route: 042
     Dates: start: 20041210, end: 20050104
  3. ZOLEDRONIC ACID [Concomitant]
     Indication: METASTASES TO BONE
     Route: 042
     Dates: start: 20050330
  4. GABAPENTIN [Concomitant]
     Indication: NEUROPATHY PERIPHERAL
     Dosage: DOSE:  900-1200 MILLIGRAMS
     Route: 048
     Dates: start: 20050217

REACTIONS (2)
  - CRANIAL NERVE PARALYSIS [None]
  - DIPLOPIA [None]
